FAERS Safety Report 15331660 (Version 2)
Quarter: 2018Q3

REPORT INFORMATION
  Report Type: Spontaneous
  Country: FR (occurrence: FR)
  Receive Date: 20180829
  Receipt Date: 20180911
  Transmission Date: 20181010
  Serious: Yes (Other)
  Sender: FDA-Public Use
  Company Number: FR-009507513-1808FRA010449

PATIENT
  Age: 24 Year
  Sex: Female

DRUGS (1)
  1. MAXALTLYO [Suspect]
     Active Substance: RIZATRIPTAN BENZOATE
     Indication: MIGRAINE
     Dosage: 10 MG, AS NECESSARY
     Route: 048
     Dates: start: 20180803, end: 20180803

REACTIONS (2)
  - Paraesthesia oral [Recovered/Resolved]
  - Speech disorder [Recovered/Resolved]

NARRATIVE: CASE EVENT DATE: 20180803
